FAERS Safety Report 7683312-8 (Version None)
Quarter: 2011Q3

REPORT INFORMATION
  Report Type: 
  Country: None (occurrence: None)
  Receive Date: 20110815
  Receipt Date: 20110808
  Transmission Date: 20111222
  Serious: Yes (Other)
  Sender: FDA-Public Use
  Company Number: IE-GLAXOSMITHKLINE-B0738856A

PATIENT
  Age: 29 Year
  Sex: Female
  Weight: 58 kg

DRUGS (2)
  1. MALARONE [Suspect]
     Indication: MALARIA PROPHYLAXIS
     Dosage: 1TAB IN THE MORNING
     Route: 048
     Dates: start: 20110623, end: 20110707
  2. HEPATYRIX [Concomitant]
     Indication: PROPHYLAXIS
     Route: 065
     Dates: start: 20110531, end: 20110531

REACTIONS (7)
  - MUSCULOSKELETAL STIFFNESS [None]
  - MOBILITY DECREASED [None]
  - AMENORRHOEA [None]
  - DIZZINESS [None]
  - MYALGIA [None]
  - POST-TRAUMATIC NECK SYNDROME [None]
  - HEADACHE [None]
